FAERS Safety Report 9018695 (Version 2)
Quarter: 2013Q3

REPORT INFORMATION
  Report Type: Report from Study
  Country: NL (occurrence: NL)
  Receive Date: 20130118
  Receipt Date: 20130930
  Transmission Date: 20140515
  Serious: Yes (Death)
  Sender: FDA-Public Use
  Company Number: PHHY2013NL004423

PATIENT
  Sex: Male

DRUGS (2)
  1. ZOMETA [Suspect]
     Indication: PROSTATE CANCER METASTATIC
     Dosage: 4 MG, (EVERY 28 DAYS)
     Route: 042
     Dates: start: 20121022
  2. ZOMETA [Suspect]
     Dosage: UNK UKN, UNK
     Dates: start: 20121221

REACTIONS (1)
  - Death [Fatal]
